FAERS Safety Report 18253073 (Version 1)
Quarter: 2020Q3

REPORT INFORMATION
  Report Type: Other
  Country: IT (occurrence: IT)
  Receive Date: 20200910
  Receipt Date: 20200910
  Transmission Date: 20201103
  Serious: Yes (Other)
  Sender: FDA-Public Use
  Company Number: IT-MACLEODS PHARMACEUTICALS US LTD-MAC2020027933

PATIENT

DRUGS (27)
  1. ARIPIPRAZOLE. [Suspect]
     Active Substance: ARIPIPRAZOLE
     Indication: SLEEP DISORDER
     Dosage: UNK
     Route: 065
  2. DEXMEDETOMIDINE. [Suspect]
     Active Substance: DEXMEDETOMIDINE
     Indication: SLEEP DISORDER
     Dosage: 3 MICROGRAM/KILOGRAM, QD, INTRA?NASAL
     Route: 050
  3. PARACETAMOL [Suspect]
     Active Substance: ACETAMINOPHEN
     Indication: PAIN
     Dosage: UNK
     Route: 065
  4. ALPRAZOLAM. [Suspect]
     Active Substance: ALPRAZOLAM
     Indication: DEPRESSION
     Dosage: 0.01 MILLIGRAM/KILOGRAM, QD, OFF LABEL USE
     Route: 065
  5. MELATONIN [Suspect]
     Active Substance: MELATONIN
     Indication: SLEEP DISORDER
     Dosage: 0.05 MILLIGRAM/KILOGRAM, QD
     Route: 065
  6. CHLORPHENAMINE [Suspect]
     Active Substance: CHLORPHENIRAMINE MALEATE
     Dosage: 0.2 MILLIGRAM/KILOGRAM, QD
     Route: 065
  7. DIPYRONE [Suspect]
     Active Substance: DIPYRONE
     Dosage: 20 MILLIGRAM/KILOGRAM, QD
     Route: 065
  8. KETAMINE [Concomitant]
     Active Substance: KETAMINE
     Indication: SEDATION
     Dosage: 3.5 MG/KG, QD, (MAX DOSE REQUIRED 3.5 MG/KG/DAY)
     Route: 065
  9. ARIPIPRAZOLE. [Suspect]
     Active Substance: ARIPIPRAZOLE
     Indication: DEPRESSION
     Dosage: 0.3 MILLIGRAM/KILOGRAM, QD
     Route: 065
  10. TRAZODONE [Suspect]
     Active Substance: TRAZODONE HYDROCHLORIDE
     Indication: DEPRESSION
     Dosage: UNK
     Route: 065
  11. GABAPENTIN. [Suspect]
     Active Substance: GABAPENTIN
     Indication: PAIN
     Dosage: 25 MILLIGRAM/KILOGRAM, QD
     Route: 065
  12. ARIPIPRAZOLE. [Suspect]
     Active Substance: ARIPIPRAZOLE
     Indication: ANXIETY
     Dosage: UNK
     Route: 065
  13. IBUPROFEN. [Suspect]
     Active Substance: IBUPROFEN
     Indication: PAIN
     Dosage: UNK
     Route: 065
  14. ALPRAZOLAM. [Suspect]
     Active Substance: ALPRAZOLAM
     Indication: SLEEP DISORDER
     Dosage: 0.01 MILLIGRAM/KILOGRAM, QD, OFF LABEL USE
     Route: 065
  15. TRAZODONE [Suspect]
     Active Substance: TRAZODONE HYDROCHLORIDE
     Indication: SLEEP DISORDER
     Dosage: 1 MILLIGRAM/KILOGRAM, QD
     Route: 065
  16. GABAPENTIN. [Suspect]
     Active Substance: GABAPENTIN
     Dosage: 25 MILLIGRAM/KILOGRAM, QD
     Route: 065
  17. NIAPRAZINE [Suspect]
     Active Substance: NIAPRAZINE
     Dosage: 1 MILLIGRAM/KILOGRAM, QD
     Route: 065
  18. TRAZODONE [Suspect]
     Active Substance: TRAZODONE HYDROCHLORIDE
     Indication: ANXIETY
     Dosage: UNK
     Route: 065
  19. CHLORPHENAMINE [Suspect]
     Active Substance: CHLORPHENIRAMINE MALEATE
     Indication: PRURITUS
     Dosage: 0.2 MILLIGRAM/KILOGRAM, QD
     Route: 065
  20. PROPOFOL. [Concomitant]
     Active Substance: PROPOFOL
     Indication: SEDATION
     Dosage: 5 MILLIGRAM/KILOGRAM, QD, 3 TIMES A WEEK, (MAXIMUM DOSE REQUIRED 5 MG/KG/DAY) 3 TIMES
     Route: 065
  21. TRAMADOL. [Suspect]
     Active Substance: TRAMADOL
     Dosage: 5 MILLIGRAM/KILOGRAM, QD
     Route: 065
  22. ALPRAZOLAM. [Suspect]
     Active Substance: ALPRAZOLAM
     Indication: ANXIETY
     Dosage: UNK, OFF LABEL USE
     Route: 065
  23. NIAPRAZINE [Suspect]
     Active Substance: NIAPRAZINE
     Indication: SLEEP DISORDER
     Dosage: 1 MILLIGRAM/KILOGRAM, QD
     Route: 065
  24. DIAZEPAM. [Suspect]
     Active Substance: DIAZEPAM
     Indication: SLEEP DISORDER
     Dosage: 0.1 MILLIGRAM/KILOGRAM, QD
     Route: 065
  25. TRAMADOL. [Suspect]
     Active Substance: TRAMADOL
     Indication: PAIN
     Dosage: 6 MILLIGRAM/KILOGRAM, QD
     Route: 065
  26. CETIRIZINE [Suspect]
     Active Substance: CETIRIZINE HYDROCHLORIDE
     Indication: PRURITUS
     Dosage: 1 MILLIGRAM/KILOGRAM, QD
     Route: 065
  27. DIPYRONE [Suspect]
     Active Substance: DIPYRONE
     Indication: PAIN
     Dosage: 20 MILLIGRAM/KILOGRAM, QD
     Route: 065

REACTIONS (9)
  - Quality of life decreased [Unknown]
  - Irritability [Unknown]
  - Agitation [Unknown]
  - Drug ineffective [Unknown]
  - Off label use [Unknown]
  - Fatigue [Unknown]
  - Sleep disorder [Unknown]
  - Paradoxical drug reaction [Unknown]
  - Confusional arousal [Unknown]
